FAERS Safety Report 24841808 (Version 1)
Quarter: 2025Q1

REPORT INFORMATION
  Report Type: Spontaneous
  Country: AR (occurrence: AR)
  Receive Date: 20250114
  Receipt Date: 20250114
  Transmission Date: 20250409
  Serious: Yes (Hospitalization)
  Sender: AMGEN
  Company Number: AR-PFIZER INC-202500005653

PATIENT
  Age: 65 Year
  Sex: Female

DRUGS (1)
  1. ENBREL [Suspect]
     Active Substance: ETANERCEPT
     Indication: Rheumatoid arthritis
     Dosage: 25 MG, WEEKLY
     Route: 065
     Dates: start: 20150523, end: 20250101

REACTIONS (5)
  - Hypersensitivity [Recovering/Resolving]
  - Eczema [Recovering/Resolving]
  - Burning sensation [Recovering/Resolving]
  - Pruritus [Recovering/Resolving]
  - Off label use [Recovering/Resolving]

NARRATIVE: CASE EVENT DATE: 20150523
